FAERS Safety Report 25785163 (Version 1)
Quarter: 2025Q3

REPORT INFORMATION
  Report Type: Spontaneous
  Country: JP (occurrence: None)
  Receive Date: 20250910
  Receipt Date: 20250910
  Transmission Date: 20251021
  Serious: Yes (Hospitalization)
  Sender: ENCUBE ETHICALS PVT. LTD.
  Company Number: JP-Encube-002235

PATIENT
  Age: 62 Year
  Sex: Male

DRUGS (18)
  1. METRONIDAZOLE [Suspect]
     Active Substance: METRONIDAZOLE
     Indication: Clostridium difficile infection
     Route: 048
  2. MYCOPHENOLATE MOFETIL [Concomitant]
     Active Substance: MYCOPHENOLATE MOFETIL
  3. TACROLIMUS [Concomitant]
     Active Substance: TACROLIMUS
  4. PREDNISOLONE [Concomitant]
     Active Substance: PREDNISOLONE
  5. LETERMOVIR [Concomitant]
     Active Substance: LETERMOVIR
  6. ACYCLOVIR [Concomitant]
     Active Substance: ACYCLOVIR
  7. FLUCONAZOLE [Concomitant]
     Active Substance: FLUCONAZOLE
  8. MICAFUNGIN [Concomitant]
     Active Substance: MICAFUNGIN SODIUM
  9. CASPOFUNGIN [Concomitant]
     Active Substance: CASPOFUNGIN
  10. TEICOPLANIN [Concomitant]
     Active Substance: TEICOPLANIN
  11. CEFEPIME [Concomitant]
     Active Substance: CEFEPIME HYDROCHLORIDE
  12. MEROPENEM [Concomitant]
     Active Substance: MEROPENEM
  13. VANCOMYCIN [Concomitant]
     Active Substance: VANCOMYCIN
  14. PIPERACILLIN SODIUM\TAZOBACTAM SODIUM [Concomitant]
     Active Substance: PIPERACILLIN SODIUM\TAZOBACTAM SODIUM
  15. EPINEPHRINE [Concomitant]
     Active Substance: EPINEPHRINE
  16. NOREPINEPHRINE BITARTRATE [Concomitant]
     Active Substance: NOREPINEPHRINE BITARTRATE
  17. FENTANYL [Concomitant]
     Active Substance: FENTANYL
  18. METRONIDAZOLE [Suspect]
     Active Substance: METRONIDAZOLE
     Indication: Clostridium difficile infection
     Dosage: 16.5 G OVER 12 DAYS

REACTIONS (3)
  - Toxic encephalopathy [Recovering/Resolving]
  - Altered state of consciousness [Recovered/Resolved]
  - Off label use [Unknown]
